FAERS Safety Report 7355883-2 (Version None)
Quarter: 2011Q1

REPORT INFORMATION
  Report Type: 
  Country: None (occurrence: None)
  Receive Date: 20110316
  Receipt Date: 20110309
  Transmission Date: 20110831
  Serious: Yes (Other)
  Sender: FDA-Public Use
  Company Number: US-JNJFOC-2011002200

PATIENT
  Sex: Male
  Weight: 79.38 kg

DRUGS (2)
  1. ROGAINE [Suspect]
     Indication: ALOPECIA
     Dosage: AS RECOMMENDED
     Route: 061
  2. ROGAINE [Suspect]
     Route: 061

REACTIONS (4)
  - APPLICATION SITE REACTION [None]
  - APPLICATION SITE PRURITUS [None]
  - SKIN DISORDER [None]
  - APPLICATION SITE BURN [None]
